FAERS Safety Report 16235474 (Version 2)
Quarter: 2019Q2

REPORT INFORMATION
  Report Type: Spontaneous
  Country: US (occurrence: US)
  Receive Date: 20190424
  Receipt Date: 20190521
  Transmission Date: 20190711
  Serious: No
  Sender: FDA-Public Use
  Company Number: US-VIFOR (INTERNATIONAL) INC.-VIT-2019-03340

PATIENT
  Sex: Male
  Weight: 77.18 kg

DRUGS (2)
  1. VELTASSA [Suspect]
     Active Substance: PATIROMER
     Dates: start: 2019
  2. VELTASSA [Suspect]
     Active Substance: PATIROMER
     Indication: BLOOD POTASSIUM INCREASED
     Route: 048
     Dates: start: 2018, end: 2018

REACTIONS (5)
  - Blood potassium increased [Recovered/Resolved]
  - Faeces hard [Unknown]
  - Bowel movement irregularity [Recovering/Resolving]
  - Constipation [Not Recovered/Not Resolved]
  - Product colour issue [Unknown]
